FAERS Safety Report 12484880 (Version 1)
Quarter: 2016Q2

REPORT INFORMATION
  Report Type: Spontaneous
  Country: JP (occurrence: JP)
  Receive Date: 20160621
  Receipt Date: 20160621
  Transmission Date: 20160815
  Serious: Yes (Life-Threatening, Hospitalization)
  Sender: FDA-Public Use
  Company Number: JP-ABBVIE-16P-087-1657398-00

PATIENT
  Age: 74 Year
  Sex: Female
  Weight: 34 kg

DRUGS (3)
  1. ITRIZOLE [Suspect]
     Active Substance: ITRACONAZOLE
     Indication: PRODUCT USED FOR UNKNOWN INDICATION
     Route: 048
     Dates: start: 2007, end: 201511
  2. CLARITHROMYCIN. [Suspect]
     Active Substance: CLARITHROMYCIN
     Indication: PRODUCT USED FOR UNKNOWN INDICATION
     Route: 065
     Dates: end: 20160103
  3. VFEND [Suspect]
     Active Substance: VORICONAZOLE
     Indication: BRONCHOPULMONARY ASPERGILLOSIS
     Route: 048
     Dates: start: 20151119, end: 20160103

REACTIONS (11)
  - Bundle branch block left [Not Recovered/Not Resolved]
  - Dyspnoea [Unknown]
  - Hypophagia [Unknown]
  - Ventricular tachycardia [Unknown]
  - Malaise [Unknown]
  - Cardiogenic shock [Recovered/Resolved]
  - Acute respiratory failure [Unknown]
  - Pneumonia bacterial [Unknown]
  - Hypoxia [Recovered/Resolved]
  - Electrocardiogram QT prolonged [Recovered/Resolved]
  - Blood pressure abnormal [Recovered/Resolved]

NARRATIVE: CASE EVENT DATE: 20151230
